FAERS Safety Report 5571915-6 (Version None)
Quarter: 2007Q4

REPORT INFORMATION
  Report Type: 
  Country: None (occurrence: None)
  Receive Date: 20071221
  Receipt Date: 20071219
  Transmission Date: 20080405
  Serious: Yes (Hospitalization)
  Sender: FDA-Public Use
  Company Number: HQWYE854226JAN05

PATIENT
  Sex: Male
  Weight: 87.5 kg

DRUGS (9)
  1. RAPAMUNE [Suspect]
     Indication: PROPHYLAXIS AGAINST TRANSPLANT REJECTION
     Route: 048
     Dates: start: 20041028, end: 20041030
  2. RAPAMUNE [Suspect]
     Route: 048
     Dates: start: 20041031, end: 20050124
  3. RAPAMUNE [Suspect]
     Route: 048
     Dates: start: 20050125, end: 20050125
  4. RAPAMUNE [Suspect]
     Route: 048
     Dates: start: 20050126
  5. CORTICOSTEROID NOS [Suspect]
     Indication: PROPHYLAXIS AGAINST TRANSPLANT REJECTION
     Dosage: UNKNOWN
     Route: 048
  6. PROGRAF [Suspect]
     Indication: PROPHYLAXIS AGAINST TRANSPLANT REJECTION
     Route: 048
     Dates: start: 20041028, end: 20041117
  7. PROGRAF [Suspect]
     Route: 048
     Dates: start: 20041118, end: 20050124
  8. PROGRAF [Suspect]
     Route: 048
     Dates: start: 20050125, end: 20050125
  9. PROGRAF [Suspect]
     Route: 048
     Dates: start: 20050126

REACTIONS (3)
  - CYTOMEGALOVIRUS INFECTION [None]
  - DIABETES MELLITUS [None]
  - HYPERLIPIDAEMIA [None]
